FAERS Safety Report 18514823 (Version 1)
Quarter: 2020Q4

REPORT INFORMATION
  Report Type: Other
  Country: FR (occurrence: FR)
  Receive Date: 20201117
  Receipt Date: 20201117
  Transmission Date: 20210114
  Serious: No
  Sender: FDA-Public Use
  Company Number: FR-TOLMAR, INC.-20FR023536

PATIENT
  Sex: Male

DRUGS (2)
  1. ANANDRON [Suspect]
     Active Substance: NILUTAMIDE
     Indication: ADJUVANT THERAPY
     Dosage: 1 DOSAGE FORM, QD
     Route: 048
     Dates: start: 20190308, end: 20190324
  2. ELIGARD [Suspect]
     Active Substance: LEUPROLIDE ACETATE
     Indication: PROSTATE CANCER
     Dosage: UNK
     Route: 065

REACTIONS (3)
  - Gastrointestinal pain [Recovered/Resolved]
  - Dry skin [Not Recovered/Not Resolved]
  - Hepatic pain [Recovered/Resolved]
